FAERS Safety Report 9067601 (Version 1)
Quarter: 2013Q1

REPORT INFORMATION
  Report Type: Spontaneous
  Country: CA (occurrence: CA)
  Receive Date: 20130206
  Receipt Date: 20130206
  Transmission Date: 20140127
  Serious: Yes (Other)
  Sender: FDA-Public Use
  Company Number: CA-BAYER-2013-012949

PATIENT
  Age: 31 Year
  Sex: Female

DRUGS (2)
  1. ASPIRIN [Suspect]
     Indication: ANTICOAGULANT THERAPY
  2. HEPARIN [Concomitant]
     Indication: ANTICOAGULANT THERAPY
     Route: 042

REACTIONS (2)
  - Abortion spontaneous [None]
  - Exposure during pregnancy [None]
